FAERS Safety Report 6385648-X (Version None)
Quarter: 2009Q4

REPORT INFORMATION
  Report Type: 
  Country: None (occurrence: None)
  Receive Date: 20091002
  Receipt Date: 20081020
  Transmission Date: 20100525
  Serious: No
  Sender: FDA-Public Use
  Company Number: US-ASTRAZENECA-2008UW23390

PATIENT
  Sex: Female

DRUGS (2)
  1. ARIMIDEX [Suspect]
     Dosage: UNKNOWN
     Route: 048
     Dates: start: 20071001
  2. HORMONE THERAPY [Concomitant]

REACTIONS (3)
  - DEPRESSED MOOD [None]
  - HOT FLUSH [None]
  - LOSS OF LIBIDO [None]
